FAERS Safety Report 8604633 (Version 3)
Quarter: 2012Q4

REPORT INFORMATION
  Report Type: Report from Study
  Country: US (occurrence: US)
  Receive Date: 20120608
  Receipt Date: 20121102
  Transmission Date: 20130627
  Serious: Yes (Hospitalization, Other)
  Sender: FDA-Public Use
  Company Number: US-PFIZER INC-2012132977

PATIENT
  Age: 83 Year
  Sex: Male
  Weight: 77.1 kg

DRUGS (23)
  1. IRINOTECAN HCL [Suspect]
     Indication: METASTATIC COLORECTAL CANCER
     Dosage: 180 mg/m2, day 1 every 14 days
     Route: 042
     Dates: start: 20120501, end: 20120501
  2. FLUOROURACIL [Suspect]
     Indication: METASTATIC COLORECTAL CANCER
     Dosage: 400 mg/m2, bolus
     Route: 040
     Dates: start: 20120501, end: 20120503
  3. FLUOROURACIL [Suspect]
     Dosage: 2400 mg/m2, day 1 and 2 every 14 days
     Route: 042
     Dates: start: 20120501, end: 20120503
  4. FOLINIC ACID [Suspect]
     Indication: METASTATIC COLORECTAL CANCER
     Dosage: 400 mg/m2, day 1 every 14 days
     Route: 042
     Dates: start: 20120501, end: 20120501
  5. BLINDED THERAPY [Suspect]
     Indication: METASTATIC COLORECTAL CANCER
     Dosage: day 1 every 14 days
     Route: 042
     Dates: start: 20120501, end: 20120501
  6. WARFARIN [Concomitant]
     Indication: ATRIAL FIBRILLATION
     Dosage: UNK
     Dates: start: 1993
  7. LISINOPRIL [Concomitant]
     Indication: HYPERTENSION
     Dosage: UNK
     Dates: start: 201110
  8. ATIVAN [Concomitant]
     Indication: NAUSEA
     Dosage: UNK
     Dates: start: 20120417
  9. MECLIZINE [Concomitant]
     Indication: NAUSEA
     Dosage: UNK
     Dates: start: 201104
  10. OMEPRAZOLE [Concomitant]
     Indication: GASTROESOPHAGEAL REFLUX DISEASE
     Dosage: UNK
     Dates: start: 201104
  11. FLAXSEED OIL [Concomitant]
     Indication: NUTRITIONAL SUPPLEMENT
     Dosage: UNK
     Dates: start: 201201
  12. MULTIVIT [Concomitant]
     Indication: NUTRITIONAL SUPPLEMENT
     Dosage: UNK
     Dates: start: 201104
  13. DOXYCYCLINE [Concomitant]
     Indication: PROPHYLAXIS
     Dosage: UNK
     Dates: start: 201201
  14. LOMOTIL [Concomitant]
     Indication: DIARRHEA
     Dosage: UNK
     Dates: start: 20120417
  15. COSOPT [Concomitant]
     Indication: GLAUCOMA
     Dosage: UNK
     Dates: start: 20120421
  16. AZOPT [Concomitant]
     Indication: GLAUCOMA
     Dosage: UNK
     Dates: start: 201110
  17. LUMIGAN [Concomitant]
     Indication: GLAUCOMA
     Dosage: UNK
     Dates: start: 201110
  18. EMLA [Concomitant]
     Indication: PAIN
     Dosage: UNK
     Route: 061
     Dates: start: 20120419
  19. ATROPINE [Concomitant]
     Indication: PROPHYLAXIS
     Dosage: UNK, every two weeks
     Route: 042
     Dates: start: 20120501
  20. ALOXI [Concomitant]
     Indication: PROPHYLAXIS
     Dosage: UNK, every 2 weeks
     Dates: start: 20120501
  21. DECADRAN [Concomitant]
     Dosage: UNK, every two weeks
     Dates: start: 20120501
  22. BENADRYL [Concomitant]
     Indication: PROPHYLAXIS
     Dosage: UNK, every two weeks
     Dates: start: 20120501
  23. SEPTANEST [Concomitant]
     Dosage: UNK
     Dates: start: 201110

REACTIONS (1)
  - Fall [Recovered/Resolved]
